FAERS Safety Report 13800552 (Version 1)
Quarter: 2017Q3

REPORT INFORMATION
  Report Type: Spontaneous
  Country: GB (occurrence: GB)
  Receive Date: 20170727
  Receipt Date: 20170727
  Transmission Date: 20171127
  Serious: Yes (Other)
  Sender: FDA-Public Use
  Company Number: GB-PFIZER INC-3079714

PATIENT
  Age: 55 Year
  Sex: Female
  Weight: 63.5 kg

DRUGS (2)
  1. WATER FOR INJECTION [Suspect]
     Active Substance: WATER
     Indication: CATARACT OPERATION
     Dosage: 1000 ML, UNK
     Route: 047
     Dates: start: 20150513
  2. CEFUROXIME. [Suspect]
     Active Substance: CEFUROXIME
     Indication: CATARACT OPERATION
     Dosage: 250 MG, UNK
     Route: 047
     Dates: start: 20150513

REACTIONS (2)
  - Off label use [Unknown]
  - Corneal opacity [Unknown]

NARRATIVE: CASE EVENT DATE: 20150513
